FAERS Safety Report 13489438 (Version 2)
Quarter: 2017Q2

REPORT INFORMATION
  Report Type: Spontaneous
  Country: US (occurrence: US)
  Receive Date: 20170427
  Receipt Date: 20170525
  Transmission Date: 20170830
  Serious: Yes (Other)
  Sender: FDA-Public Use
  Company Number: US-ELI_LILLY_AND_COMPANY-US201704009868

PATIENT
  Sex: Female

DRUGS (1)
  1. PROZAC [Suspect]
     Active Substance: FLUOXETINE HYDROCHLORIDE
     Indication: SUICIDAL IDEATION
     Dosage: UNK, UNKNOWN
     Route: 065

REACTIONS (4)
  - Fall [Unknown]
  - Gait disturbance [Unknown]
  - Psychogenic seizure [Recovered/Resolved]
  - Hypersensitivity [Unknown]
